FAERS Safety Report 6031207-8 (Version None)
Quarter: 2008Q4

REPORT INFORMATION
  Report Type: 
  Country: None (occurrence: None)
  Receive Date: 20081222
  Receipt Date: 20080926
  Transmission Date: 20090506
  Serious: Yes (Hospitalization, Other)
  Sender: FDA-Public Use
  Company Number: US-WYE-H06168408

PATIENT
  Age: 23 Year
  Sex: Female
  Weight: 54.48 kg

DRUGS (3)
  1. PRISTIQ [Suspect]
     Indication: MAJOR DEPRESSION
     Dosage: 50 MG 1X PER 1 DAY, ORAL, 100 MG 1X PER 1 DAY, ORAL
     Route: 048
     Dates: start: 20080801, end: 20080911
  2. PRISTIQ [Suspect]
     Indication: MAJOR DEPRESSION
     Dosage: 50 MG 1X PER 1 DAY, ORAL, 100 MG 1X PER 1 DAY, ORAL
     Route: 048
     Dates: start: 20080912
  3. XANAX [Suspect]
     Indication: ANXIETY
     Dosage: 0.5 MG 2X PER 1 DAY, ORAL
     Route: 048
     Dates: start: 20080912, end: 20080916

REACTIONS (1)
  - CONVULSION [None]
